FAERS Safety Report 6341989-3 (Version None)
Quarter: 2009Q3

REPORT INFORMATION
  Report Type: 
  Country: None (occurrence: None)
  Receive Date: 20090904
  Receipt Date: 20090821
  Transmission Date: 20100115
  Serious: Yes (Other)
  Sender: FDA-Public Use
  Company Number: CA-GENENTECH-217624

PATIENT
  Sex: Male
  Weight: 79.6 kg

DRUGS (6)
  1. BEVACIZUMAB [Suspect]
     Indication: COLON CANCER
     Dosage: 398 MG, Q2W
     Route: 042
     Dates: start: 20050704
  2. OXALIPLATIN [Suspect]
     Indication: COLON CANCER
     Dosage: 168 MG, Q2W
     Route: 042
     Dates: start: 20050704
  3. FLUOROURACIL [Suspect]
     Indication: COLON CANCER
     Dosage: 792 MG, Q2W
     Route: 042
     Dates: start: 20050704
  4. LEUCOVORIN CALCIUM [Suspect]
     Indication: COLON CANCER
     Dosage: 396 MG, Q2W
     Route: 042
     Dates: start: 20050704
  5. COUMADIN [Concomitant]
     Indication: DRUG USE FOR UNKNOWN INDICATION
     Dates: start: 20050729
  6. PEPCID [Concomitant]
     Indication: DRUG USE FOR UNKNOWN INDICATION
     Dosage: UNK, UNK
     Dates: start: 19800615

REACTIONS (1)
  - ANGINA PECTORIS [None]
